FAERS Safety Report 24592519 (Version 2)
Quarter: 2024Q4

REPORT INFORMATION
  Report Type: Report from Study
  Country: BR (occurrence: BR)
  Receive Date: 20241108
  Receipt Date: 20241119
  Transmission Date: 20250115
  Serious: Yes (Hospitalization, Other)
  Sender: BIOVITRUM
  Company Number: BR-AstraZeneca-CH-00739535A

PATIENT
  Age: 10 Month
  Sex: Male
  Weight: 9.1 kg

DRUGS (4)
  1. PALIVIZUMAB [Suspect]
     Active Substance: PALIVIZUMAB
     Indication: Premature baby
     Dosage: UNKNOWN
     Route: 030
     Dates: start: 202402
  2. MOTILIUM [Concomitant]
     Active Substance: DOMPERIDONE
     Indication: Product used for unknown indication
  3. PRENI [Concomitant]
     Indication: Product used for unknown indication
  4. ALBUTEROL [Concomitant]
     Active Substance: ALBUTEROL
     Indication: Product used for unknown indication

REACTIONS (14)
  - Pneumonia viral [Recovered/Resolved]
  - Bronchiolitis [Recovered/Resolved]
  - Pyrexia [Unknown]
  - Rash [Unknown]
  - Eye discharge [Unknown]
  - Productive cough [Unknown]
  - Nasal disorder [Unknown]
  - Oxygen saturation decreased [Unknown]
  - Heart rate increased [Unknown]
  - Respiratory disorder [Unknown]
  - Wheezing [Unknown]
  - Breath sounds abnormal [Unknown]
  - Gastrointestinal disorder [Unknown]
  - Chest X-ray abnormal [Unknown]

NARRATIVE: CASE EVENT DATE: 20241019
